FAERS Safety Report 7037053-0 (Version None)
Quarter: 2010Q4

REPORT INFORMATION
  Report Type: 
  Country: None (occurrence: None)
  Receive Date: 20101011
  Receipt Date: 20101001
  Transmission Date: 20110411
  Serious: Yes (Hospitalization, Other)
  Sender: FDA-Public Use
  Company Number: NL-ROXANE LABORATORIES, INC.-2010-RO-01307RO

PATIENT
  Age: 43 Year
  Sex: Male

DRUGS (5)
  1. ROPINIROLE [Suspect]
     Indication: PARKINSON'S DISEASE
     Dosage: 40 MG
  2. ROPINIROLE [Suspect]
  3. CLONAZEPAM [Suspect]
     Indication: AKATHISIA
     Dosage: 16 MG
  4. TRAMADOL [Suspect]
     Indication: BACK PAIN
     Dosage: 200 MG
  5. LEVODOPA [Suspect]
     Indication: PARKINSON'S DISEASE

REACTIONS (4)
  - DOPAMINE DYSREGULATION SYNDROME [None]
  - GAIT DISTURBANCE [None]
  - PAIN [None]
  - POLYSUBSTANCE DEPENDENCE [None]
